FAERS Safety Report 25211281 (Version 1)
Quarter: 2025Q2

REPORT INFORMATION
  Report Type: Report from Study
  Country: US (occurrence: US)
  Receive Date: 20250417
  Receipt Date: 20250417
  Transmission Date: 20250716
  Serious: Yes (Other)
  Sender: BAUSCH AND LOMB
  Company Number: US-BAUSCHBL-2025BNL006456

PATIENT
  Age: 67 Year
  Sex: Female

DRUGS (1)
  1. VYZULTA [Suspect]
     Active Substance: LATANOPROSTENE BUNOD
     Indication: Glaucoma
     Dosage: INSTILL 1 DROP INTO EACH EYE EVERY EVENING
     Route: 047
     Dates: start: 20240418

REACTIONS (2)
  - Glaucoma [Unknown]
  - Product use issue [Unknown]
